FAERS Safety Report 7201070-8 (Version None)
Quarter: 2010Q4

REPORT INFORMATION
  Report Type: 
  Country: None (occurrence: None)
  Receive Date: 20101229
  Receipt Date: 20101220
  Transmission Date: 20110411
  Serious: Yes (Hospitalization)
  Sender: FDA-Public Use
  Company Number: US-BIOGENIDEC-2010BI044418

PATIENT
  Age: 42 Year
  Sex: Female

DRUGS (1)
  1. AVONEX [Suspect]
     Indication: MULTIPLE SCLEROSIS
     Route: 030
     Dates: start: 20100720

REACTIONS (6)
  - AMNESIA [None]
  - BRAIN INJURY [None]
  - HALLUCINATION [None]
  - INFLUENZA LIKE ILLNESS [None]
  - JOINT SWELLING [None]
  - NAUSEA [None]
